FAERS Safety Report 8196590-6 (Version None)
Quarter: 2012Q1

REPORT INFORMATION
  Report Type: 
  Country: None (occurrence: None)
  Receive Date: 20120307
  Receipt Date: 20120224
  Transmission Date: 20120608
  Serious: Yes (Other)
  Sender: FDA-Public Use
  Company Number: IMP_05763_2012

PATIENT
  Age: 40 Year
  Sex: Female

DRUGS (1)
  1. BUPROPION HCL [Suspect]
     Indication: PRODUCT USED FOR UNKNOWN INDICATION
     Dosage: 100 MG TID

REACTIONS (6)
  - ANGLE CLOSURE GLAUCOMA [None]
  - CORNEAL OEDEMA [None]
  - MYOPIA [None]
  - CHOROIDAL EFFUSION [None]
  - FLAT ANTERIOR CHAMBER OF EYE [None]
  - VISION BLURRED [None]
